FAERS Safety Report 5782979-9 (Version None)
Quarter: 2008Q2

REPORT INFORMATION
  Report Type: 
  Country: None (occurrence: None)
  Receive Date: 20080624
  Receipt Date: 20080616
  Transmission Date: 20081010
  Serious: Yes (Disabling, Other)
  Sender: FDA-Public Use
  Company Number: MX-AVENTIS-200812734GDDC

PATIENT
  Age: 34 Year
  Sex: Male
  Weight: 43 kg

DRUGS (4)
  1. ARAVA [Suspect]
     Indication: PSORIASIS
     Route: 048
     Dates: start: 20071201, end: 20071201
  2. ARAVA [Suspect]
     Route: 048
     Dates: start: 20071201, end: 20071201
  3. ARAVA [Suspect]
     Route: 048
     Dates: start: 20080301, end: 20080301
  4. METHOTREXATE [Concomitant]
     Dates: start: 20070101, end: 20070101

REACTIONS (2)
  - OFF LABEL USE [None]
  - PSORIASIS [None]
